FAERS Safety Report 19035801 (Version 1)
Quarter: 2021Q1

REPORT INFORMATION
  Report Type: Spontaneous
  Country: ES (occurrence: ES)
  Receive Date: 20210321
  Receipt Date: 20210321
  Transmission Date: 20210420
  Serious: Yes (Life-Threatening, Hospitalization)
  Sender: FDA-Public Use
  Company Number: ES-TEVA-2021-ES-1891697

PATIENT
  Age: 75 Year
  Sex: Male

DRUGS (1)
  1. PACLITAXEL TEVA 6 MG/ML CONCENTRADO PARA SOLUCION PARA PERFUSION EFG, [Suspect]
     Active Substance: PACLITAXEL
     Indication: LUNG NEOPLASM MALIGNANT
     Dosage: CARBOPLATIN + TAXOL 2ND CYCLE , UNIT DOSE : 1 DF
     Route: 065
     Dates: start: 20201218, end: 20201218

REACTIONS (5)
  - Hypoxia [Recovered/Resolved]
  - Abdominal pain upper [Recovered/Resolved]
  - Bradycardia [Recovered/Resolved]
  - Back pain [Recovered/Resolved]
  - Loss of consciousness [Recovered/Resolved]

NARRATIVE: CASE EVENT DATE: 20201218
